FAERS Safety Report 5904404-7 (Version None)
Quarter: 2008Q4

REPORT INFORMATION
  Report Type: 
  Country: None (occurrence: None)
  Receive Date: 20081001
  Receipt Date: 20080930
  Transmission Date: 20090506
  Serious: Yes (Hospitalization)
  Sender: FDA-Public Use
  Company Number: US-BRISTOL-MYERS SQUIBB COMPANY-14352686

PATIENT
  Age: 65 Year
  Sex: Female

DRUGS (4)
  1. COUMADIN [Suspect]
  2. ASPIRIN [Suspect]
     Route: 048
  3. PLAVIX [Suspect]
     Dosage: PLAVIX 75MG TABS
     Route: 048
  4. LOVENOX [Suspect]
     Route: 058

REACTIONS (2)
  - STENT OCCLUSION [None]
  - TRANSIENT ISCHAEMIC ATTACK [None]
